FAERS Safety Report 4904060-0 (Version None)
Quarter: 2006Q1

REPORT INFORMATION
  Report Type: 
  Country: None (occurrence: None)
  Receive Date: 20060208
  Receipt Date: 20040317
  Transmission Date: 20060701
  Serious: No
  Sender: FDA-Public Use
  Company Number: US-GLAXOSMITHKLINE-A0504363A

PATIENT
  Age: 50 Year
  Sex: Female

DRUGS (5)
  1. PAXIL [Suspect]
     Indication: DEPRESSION
     Dosage: 20MG PER DAY
     Route: 048
  2. WELLBUTRIN SR [Concomitant]
     Dosage: 300MG PER DAY
     Route: 048
  3. PRILOSEC [Concomitant]
  4. PREMPRO [Concomitant]
  5. HYDROCHLOROTHIAZIDE [Concomitant]

REACTIONS (6)
  - AFFECT LABILITY [None]
  - DIZZINESS [None]
  - DRUG WITHDRAWAL SYNDROME [None]
  - IRRITABILITY [None]
  - NAUSEA [None]
  - TEARFULNESS [None]
